FAERS Safety Report 5663816-X (Version None)
Quarter: 2008Q1

REPORT INFORMATION
  Report Type: 
  Country: None (occurrence: None)
  Receive Date: 20080307
  Receipt Date: 20080227
  Transmission Date: 20080703
  Serious: Yes (Other)
  Sender: FDA-Public Use
  Company Number: 2008005352

PATIENT
  Sex: Female

DRUGS (1)
  1. UNISOM [Suspect]
     Dosage: 4 SLEEPGELS AT A TIME, OTHER
     Route: 050

REACTIONS (2)
  - MASS [None]
  - SKIN REACTION [None]
